FAERS Safety Report 10392851 (Version 1)
Quarter: 2014Q3

REPORT INFORMATION
  Report Type: Spontaneous
  Country: US (occurrence: None)
  Receive Date: 20140815
  Receipt Date: 20140815
  Transmission Date: 20150326
  Serious: Yes (Hospitalization)
  Sender: FDA-Public Use
  Company Number: 2014HINLIT0706

PATIENT
  Age: 16 Year
  Sex: Female
  Weight: 71 kg

DRUGS (3)
  1. LAMOTRIGINE. [Concomitant]
     Active Substance: LAMOTRIGINE
  2. MULTIVITAMIN [Concomitant]
     Active Substance: VITAMINS
  3. LEVETIRACETAM. [Suspect]
     Active Substance: LEVETIRACETAM
     Indication: CONVULSION
     Dosage: ONCE/DAY
     Route: 048

REACTIONS (3)
  - Exposure during pregnancy [None]
  - Convulsion [None]
  - Drug level below therapeutic [None]
